FAERS Safety Report 25417287 (Version 1)
Quarter: 2025Q2

REPORT INFORMATION
  Report Type: Spontaneous
  Country: FR (occurrence: FR)
  Receive Date: 20250610
  Receipt Date: 20250610
  Transmission Date: 20250716
  Serious: Yes (Death)
  Sender: ASTELLAS
  Company Number: FR-ASTELLAS-2025-AER-030808

PATIENT
  Age: 72 Year
  Sex: Female

DRUGS (1)
  1. XOSPATA [Suspect]
     Active Substance: GILTERITINIB
     Indication: Product used for unknown indication
     Dosage: 3 TABLETS DAILY BY ORAL ROUTE IN ONE INTAKE
     Route: 048
     Dates: start: 20250502

REACTIONS (1)
  - Death [Fatal]

NARRATIVE: CASE EVENT DATE: 20250101
